FAERS Safety Report 5567202-2 (Version None)
Quarter: 2007Q4

REPORT INFORMATION
  Report Type: 
  Country: None (occurrence: None)
  Receive Date: 20071130
  Receipt Date: 20070813
  Transmission Date: 20080405
  Serious: No
  Sender: FDA-Public Use
  Company Number: US200708002636

PATIENT
  Age: 51 Year
  Sex: Male

DRUGS (1)
  1. BYETTA [Suspect]
     Indication: TYPE 2 DIABETES MELLITUS
     Dosage: 10 UG, 2/D, SUBCUTANEOUS
     Route: 058
     Dates: end: 20070101

REACTIONS (6)
  - BLOOD GLUCOSE DECREASED [None]
  - CHOLECYSTITIS INFECTIVE [None]
  - HAEMATEMESIS [None]
  - PAIN [None]
  - VOMITING [None]
  - WEIGHT DECREASED [None]
